FAERS Safety Report 17311044 (Version 1)
Quarter: 2020Q1

REPORT INFORMATION
  Report Type: Spontaneous
  Country: US (occurrence: US)
  Receive Date: 20200123
  Receipt Date: 20200123
  Transmission Date: 20200409
  Serious: Yes (Other)
  Sender: FDA-Public Use
  Company Number: US-ROCHE-2362341

PATIENT
  Sex: Female

DRUGS (1)
  1. RITUXAN [Suspect]
     Active Substance: RITUXIMAB
     Indication: PRODUCT USED FOR UNKNOWN INDICATION
     Route: 065

REACTIONS (8)
  - Restlessness [Unknown]
  - Pyrexia [Unknown]
  - Tremor [Unknown]
  - Tachycardia [Unknown]
  - Gait disturbance [Unknown]
  - Dysstasia [Unknown]
  - Hyperhidrosis [Unknown]
  - Muscular weakness [Unknown]
